FAERS Safety Report 12655280 (Version 1)
Quarter: 2016Q3

REPORT INFORMATION
  Report Type: Spontaneous
  Country: US (occurrence: US)
  Receive Date: 20160816
  Receipt Date: 20160816
  Transmission Date: 20161109
  Serious: Yes (Hospitalization, Other)
  Sender: FDA-Public Use
  Company Number: US-PFIZER INC-2016383217

PATIENT
  Age: 45 Year
  Sex: Female

DRUGS (2)
  1. METHOTREXATE SODIUM. [Suspect]
     Active Substance: METHOTREXATE SODIUM
     Indication: PSORIASIS
     Dosage: 2.5 MG, 2X/DAY (EVERY 12 H FOR THREE DOSES, ONCE PER WEEK)
     Route: 048
  2. METHOTREXATE SODIUM. [Suspect]
     Active Substance: METHOTREXATE SODIUM
     Dosage: 2.5 MG, 2X/DAY  (EVERY 12 H FOR 11.5 DAYS)
     Route: 048

REACTIONS (8)
  - Upper gastrointestinal haemorrhage [Recovered/Resolved]
  - Metabolic acidosis [Recovered/Resolved]
  - Megacolon [Recovered/Resolved]
  - Pancytopenia [Recovered/Resolved]
  - Electrolyte imbalance [Recovered/Resolved]
  - Drug administration error [Unknown]
  - Renal failure [Recovered/Resolved]
  - Jaundice [Recovered/Resolved]
